FAERS Safety Report 6639591-9 (Version None)
Quarter: 2010Q1

REPORT INFORMATION
  Report Type: 
  Country: None (occurrence: None)
  Receive Date: 20100318
  Receipt Date: 20100305
  Transmission Date: 20100710
  Serious: Yes (Other)
  Sender: FDA-Public Use
  Company Number: US-SANOFI-AVENTIS-2010SA006712

PATIENT
  Sex: Female

DRUGS (2)
  1. LANTUS [Suspect]
     Indication: TYPE 2 DIABETES MELLITUS
     Dosage: 10-30 UNITS AT BEDTIME AS NEEDED
     Route: 058
     Dates: start: 20070101, end: 20100201
  2. GLUCOPHAGE [Concomitant]

REACTIONS (7)
  - BREAST CANCER [None]
  - CONDITION AGGRAVATED [None]
  - HAEMATURIA [None]
  - NITRITURIA [None]
  - PAIN [None]
  - PYURIA [None]
  - URINARY TRACT INFECTION [None]
